FAERS Safety Report 5730485-X (Version None)
Quarter: 2008Q2

REPORT INFORMATION
  Report Type: 
  Country: None (occurrence: None)
  Receive Date: 20080507
  Receipt Date: 20080429
  Transmission Date: 20081010
  Serious: Yes (Death, Life-Threatening, Hospitalization, Disabling)
  Sender: FDA-Public Use
  Company Number: DE-ROCHE-556226

PATIENT
  Sex: Female
  Weight: 64 kg

DRUGS (9)
  1. XELODA [Suspect]
     Indication: BREAST CANCER METASTATIC
     Dosage: DOSING AMOUNT REPORTED AS 2000 MG/M2=3500 MG/D
     Route: 048
     Dates: start: 20080312, end: 20080323
  2. TAXOL [Suspect]
     Indication: BREAST CANCER METASTATIC
     Dosage: DOSING AMOUNT REPORTED AS 67.5 MG/M2=114 MG
     Route: 042
     Dates: start: 20080312, end: 20080319
  3. EPIRUBICIN [Suspect]
     Indication: BREAST CANCER METASTATIC
     Dosage: ROUTE REPORTED AS: 4X.  DOSE REPORTED AS: 112.5 MG/M2.
     Route: 042
     Dates: start: 20080109, end: 20080227
  4. CYCLOPHOSPHAMIDE [Suspect]
     Indication: BREAST CANCER METASTATIC
     Dosage: ROUTE REPORTED AS: 4X. DOSE REPORTED AS: 600 MG/M2.
     Route: 042
     Dates: start: 20080109, end: 20080227
  5. EQUANIL L-A [Suspect]
     Indication: DRUG USE FOR UNKNOWN INDICATION
     Dosage: DRUG REPORTED AS: EQVIZYA.
     Route: 065
     Dates: start: 20080109
  6. BELOC-ZOK [Concomitant]
     Dosage: FREQUENCY REPORTED AS 1X1/D.
     Dates: start: 20080319, end: 20080324
  7. 1 CONCOMITANT DRUG [Concomitant]
     Dosage: NAME: GYUIZYM
     Dates: start: 20080109
  8. SIMVASTATIN [Concomitant]
  9. L-THYROXIN [Concomitant]

REACTIONS (4)
  - MUCOSAL INFLAMMATION [None]
  - NEUTROPENIA [None]
  - SEPSIS [None]
  - STOMATITIS [None]
